FAERS Safety Report 19650378 (Version 1)
Quarter: 2021Q3

REPORT INFORMATION
  Report Type: Spontaneous
  Country: US (occurrence: US)
  Receive Date: 20210802
  Receipt Date: 20210802
  Transmission Date: 20211014
  Serious: Yes (Hospitalization, Other)
  Sender: FDA-Public Use
  Company Number: None

PATIENT
  Age: 46 Year
  Sex: Female
  Weight: 58.5 kg

DRUGS (6)
  1. VIVITROL [Concomitant]
     Active Substance: NALTREXONE
  2. VITAMINS [Concomitant]
     Active Substance: VITAMINS
  3. COLLAGEN [Concomitant]
     Active Substance: COLLAGEN
  4. VITAMIN C [Concomitant]
     Active Substance: ASCORBIC ACID
  5. SUBOXONE [Suspect]
     Active Substance: BUPRENORPHINE HYDROCHLORIDE\NALOXONE HYDROCHLORIDE
     Indication: DRUG DEPENDENCE
     Route: 060
     Dates: start: 20110105, end: 20210708
  6. VITAMINS NOS [Concomitant]
     Active Substance: VITAMINS

REACTIONS (1)
  - Tooth disorder [None]

NARRATIVE: CASE EVENT DATE: 20190107
